FAERS Safety Report 16799415 (Version 1)
Quarter: 2019Q3

REPORT INFORMATION
  Report Type: Spontaneous
  Country: CN (occurrence: CN)
  Receive Date: 20190912
  Receipt Date: 20190912
  Transmission Date: 20191005
  Serious: Yes (Hospitalization)
  Sender: FDA-Public Use
  Company Number: CN-PFIZER INC-2019387391

PATIENT
  Age: 83 Year
  Sex: Female
  Weight: 40 kg

DRUGS (1)
  1. SOLU-MEDROL [Suspect]
     Active Substance: METHYLPREDNISOLONE SODIUM SUCCINATE
     Indication: CARDIAC FAILURE ACUTE
     Dosage: 40 MG, 2X/DAY
     Route: 041
     Dates: start: 20190827, end: 20190831

REACTIONS (8)
  - Movement disorder [Recovering/Resolving]
  - Mental disorder [Recovering/Resolving]
  - Off label use [Unknown]
  - Disorganised speech [Recovering/Resolving]
  - Muscle twitching [Recovering/Resolving]
  - Confusional state [Recovering/Resolving]
  - Product use in unapproved indication [Unknown]
  - Irritability [Recovering/Resolving]

NARRATIVE: CASE EVENT DATE: 20190827
